FAERS Safety Report 22653414 (Version 1)
Quarter: 2023Q2

REPORT INFORMATION
  Report Type: Report from Study
  Country: CN (occurrence: CN)
  Receive Date: 20230629
  Receipt Date: 20230629
  Transmission Date: 20230722
  Serious: Yes (Other)
  Sender: FDA-Public Use
  Company Number: CN-SA-2023SA192464

PATIENT
  Sex: Female

DRUGS (5)
  1. DOCETAXEL [Suspect]
     Active Substance: DOCETAXEL
     Indication: HER2 positive breast cancer
     Dosage: 75 MG/M2, Q3W (D1 EVERY CYCLE)
     Route: 042
  2. CARBOPLATIN [Suspect]
     Active Substance: CARBOPLATIN
     Indication: HER2 positive breast cancer
     Dosage: 6MG/ML.MIN, D1/CYCLE
     Route: 042
  3. TRASTUZUMAB [Suspect]
     Active Substance: TRASTUZUMAB
     Indication: HER2 positive breast cancer
     Dosage: 8 MG/KG LOADING DOSE D1/CYCLE
     Route: 042
  4. TRASTUZUMAB [Suspect]
     Active Substance: TRASTUZUMAB
     Dosage: 6 MG/KG MAINTENANCE DOSES D1/CYCLE
     Route: 042
  5. MECAPEGFILGRASTIM [Concomitant]
     Active Substance: MECAPEGFILGRASTIM
     Indication: Myelosuppression
     Dosage: 24-72 H AFTER CHEMOTHERAPY ON THE FIRST DAY OF EACH CYCLE

REACTIONS (1)
  - Lymphopenia [Unknown]
